FAERS Safety Report 6293338-7 (Version None)
Quarter: 2009Q3

REPORT INFORMATION
  Report Type: 
  Country: None (occurrence: None)
  Receive Date: 20090731
  Receipt Date: 20090728
  Transmission Date: 20100115
  Serious: Yes (Hospitalization)
  Sender: FDA-Public Use
  Company Number: PHHY2009US31083

PATIENT
  Sex: Female

DRUGS (4)
  1. TRILEPTAL [Suspect]
     Indication: CONVULSION
     Dosage: UNK
  2. BETASERON [Suspect]
     Indication: MULTIPLE SCLEROSIS
     Dosage: 8 MIU
     Route: 058
     Dates: start: 20070105, end: 20070331
  3. BETASERON [Suspect]
     Dosage: UNK
     Route: 058
  4. DEPAKOTE [Suspect]
     Dosage: UNK

REACTIONS (1)
  - ANAEMIA [None]
